FAERS Safety Report 4998409-0 (Version None)
Quarter: 2006Q2

REPORT INFORMATION
  Report Type: 
  Country: None (occurrence: None)
  Receive Date: 20060508
  Receipt Date: 20060425
  Transmission Date: 20061013
  Serious: Yes (Death)
  Sender: FDA-Public Use
  Company Number: 2006052654

PATIENT
  Sex: 0

DRUGS (4)
  1. DALACIN C (CLINDAMYCIN HYDOCHLORIDE) [Suspect]
     Indication: SEPSIS
     Dosage: UNKNOWN, INTRAVENOUS
     Route: 042
  2. CEFOPERAZIN (CEFOPERAZONE SODIUM) [Concomitant]
  3. CEFOTIAM HYDROCHLORIDE [Concomitant]
  4. ARICEPT [Concomitant]

REACTIONS (2)
  - CARDIAC ARREST [None]
  - SEPTIC SHOCK [None]
